FAERS Safety Report 5279398-0 (Version None)
Quarter: 2007Q1

REPORT INFORMATION
  Report Type: 
  Country: None (occurrence: None)
  Receive Date: 20061213
  Receipt Date: 20060608
  Transmission Date: 20070707
  Serious: Yes (Hospitalization)
  Sender: FDA-Public Use
  Company Number: 2006UW12358

PATIENT
  Age: 32 Year
  Sex: Male

DRUGS (1)
  1. SEROQUEL [Suspect]
     Dosage: 300 MG PO
     Route: 048

REACTIONS (4)
  - CONVULSION [None]
  - INTENTIONAL OVERDOSE [None]
  - NEUROLEPTIC MALIGNANT SYNDROME [None]
  - SUICIDE ATTEMPT [None]
